FAERS Safety Report 9013702 (Version 2)
Quarter: 2014Q1

REPORT INFORMATION
  Report Type: Spontaneous
  Country: MX (occurrence: MX)
  Receive Date: 20130115
  Receipt Date: 20140120
  Transmission Date: 20141002
  Serious: Yes (Other)
  Sender: FDA-Public Use
  Company Number: PHHY2013MX002906

PATIENT
  Age: 72 Year
  Sex: Female
  Weight: 71 kg

DRUGS (11)
  1. ACLASTA [Suspect]
     Indication: OSTEOPOROSIS
     Dosage: 5 MG/100ML ANNUALLY
     Route: 042
     Dates: start: 20120117
  2. ACLASTA [Suspect]
     Dosage: 5 MG/100ML ANNUALLY
     Route: 042
  3. ACLASTA [Suspect]
     Dosage: 5 MG/100ML ANNUALLY
     Route: 042
  4. CENTRUM [Concomitant]
     Dosage: 1 DF, DAILY
     Dates: start: 2011
  5. VITAMIIN C [Concomitant]
     Indication: PROPHYLAXIS
     Dosage: 2 DF, DAILY
     Dates: start: 2011
  6. ECHINACEA [Concomitant]
     Indication: PROPHYLAXIS
     Dosage: 1 DF, DAILY
     Dates: start: 2011
  7. SINVASTATINA [Concomitant]
     Indication: BLOOD CHOLESTEROL INCREASED
     Dosage: 20 MG, DAILY
     Dates: start: 201211
  8. ALZAM [Concomitant]
     Indication: SLEEP DISORDER
     Dosage: 1 DF, DAILY
     Dates: start: 201211
  9. ZYLOPRIM [Concomitant]
     Indication: BLOOD URIC ACID INCREASED
     Dosage: 1 DF, DAILY
     Dates: start: 201211
  10. OZONE [Concomitant]
     Indication: SPINAL PAIN
     Dosage: UNK UKN, UNK
     Dates: end: 201402
  11. CALCIUM CITRATE [Concomitant]
     Dosage: 1 TABLET (500 MG) DAILY
     Route: 048

REACTIONS (13)
  - Senile dementia [Not Recovered/Not Resolved]
  - Blood cholesterol increased [Recovered/Resolved]
  - Blood triglycerides increased [Recovered/Resolved]
  - Blood uric acid increased [Recovered/Resolved]
  - Gingival pain [Not Recovered/Not Resolved]
  - Gingival bleeding [Not Recovered/Not Resolved]
  - Apathy [Not Recovered/Not Resolved]
  - Tension [Not Recovered/Not Resolved]
  - Muscle tightness [Not Recovered/Not Resolved]
  - Gait disturbance [Not Recovered/Not Resolved]
  - Asthenia [Not Recovered/Not Resolved]
  - Bone pain [Recovering/Resolving]
  - Back pain [Not Recovered/Not Resolved]
